FAERS Safety Report 21107747 (Version 2)
Quarter: 2022Q3

REPORT INFORMATION
  Report Type: Spontaneous
  Country: JP (occurrence: JP)
  Receive Date: 20220720
  Receipt Date: 20220825
  Transmission Date: 20221027
  Serious: Yes (Hospitalization, Other)
  Sender: FDA-Public Use
  Company Number: JP-GILEAD-2022-0589643

PATIENT
  Age: 50 Year
  Sex: Male
  Weight: 65 kg

DRUGS (9)
  1. VEKLURY [Suspect]
     Active Substance: REMDESIVIR
     Indication: COVID-19
     Dosage: 200 MG, QD
     Route: 041
     Dates: start: 20220713, end: 20220713
  2. VEKLURY [Suspect]
     Active Substance: REMDESIVIR
     Dosage: 100 MG, QD
     Route: 041
     Dates: start: 20220714, end: 20220714
  3. LORAZEPAM [Concomitant]
     Active Substance: LORAZEPAM
     Indication: Alcohol withdrawal syndrome
     Dosage: 2 DOSAGE FORM, TID
     Route: 048
     Dates: start: 20220711, end: 20220712
  4. LORAZEPAM [Concomitant]
     Active Substance: LORAZEPAM
     Dosage: 1 DOSAGE FORM, TID
     Route: 048
     Dates: start: 20220713, end: 20220714
  5. LORAZEPAM [Concomitant]
     Active Substance: LORAZEPAM
     Dosage: 1 DOSAGE FORM, BID
     Route: 048
     Dates: start: 20220715, end: 20220716
  6. LACTULOSE [Concomitant]
     Active Substance: LACTULOSE
     Indication: Hyperammonaemia
     Dosage: UNK, TID
     Route: 048
     Dates: start: 20220712, end: 20220731
  7. POTASSIUM GLUCONATE [Concomitant]
     Active Substance: POTASSIUM GLUCONATE
     Indication: Hypokalaemia
     Dosage: 1 G, TID
     Route: 048
     Dates: start: 20220713, end: 20220731
  8. OMEPRAZOLE [Concomitant]
     Active Substance: OMEPRAZOLE
     Indication: Gastric ulcer
     Dosage: 20 MG, BID
     Route: 041
     Dates: start: 20220711, end: 20220719
  9. CARBAZOCHROME SULFONATE NA [Concomitant]
     Indication: Gastrointestinal haemorrhage
     Dosage: 100 MG, QD
     Route: 041
     Dates: start: 20220711, end: 20220711

REACTIONS (2)
  - Renal impairment [Unknown]
  - Pancytopenia [Recovered/Resolved]

NARRATIVE: CASE EVENT DATE: 20220715
